FAERS Safety Report 16810747 (Version 2)
Quarter: 2019Q4

REPORT INFORMATION
  Report Type: Spontaneous
  Country: CA (occurrence: CA)
  Receive Date: 20190916
  Receipt Date: 20191125
  Transmission Date: 20200122
  Serious: Yes (Other)
  Sender: FDA-Public Use
  Company Number: CA-PFIZER INC-2019391261

PATIENT
  Sex: Female

DRUGS (5)
  1. HYDROCHLOROTHIAZIDE. [Concomitant]
     Active Substance: HYDROCHLOROTHIAZIDE
     Dosage: 50 MG, 2X/DAY
     Dates: start: 2018
  2. LORAZEPAM. [Concomitant]
     Active Substance: LORAZEPAM
     Indication: INSOMNIA
     Dosage: UNK, AS NEEDED
  3. TYLENOL [Concomitant]
     Active Substance: ACETAMINOPHEN
     Dosage: OCCASIONALLY
  4. EFFEXOR XR [Suspect]
     Active Substance: VENLAFAXINE HYDROCHLORIDE
     Indication: DEPRESSION
  5. EFFEXOR XR [Suspect]
     Active Substance: VENLAFAXINE HYDROCHLORIDE
     Indication: ANXIETY
     Dosage: UNK

REACTIONS (14)
  - Skin lesion [Not Recovered/Not Resolved]
  - Vertigo [Unknown]
  - Urinary retention [Unknown]
  - Concussion [Unknown]
  - Hyperhidrosis [Unknown]
  - Micturition urgency [Unknown]
  - Nausea [Unknown]
  - Weight loss poor [Unknown]
  - Suicidal ideation [Recovered/Resolved]
  - Skin ulcer haemorrhage [Unknown]
  - Mucocutaneous haemorrhage [Unknown]
  - Hyperkalaemia [Unknown]
  - Face oedema [Unknown]
  - Paraesthesia [Unknown]
